FAERS Safety Report 9068348 (Version 1)
Quarter: 2013Q1

REPORT INFORMATION
  Report Type: Spontaneous
  Country: US (occurrence: None)
  Receive Date: 20130212
  Receipt Date: 20130212
  Transmission Date: 20140127
  Serious: Yes (Hospitalization)
  Sender: FDA-Public Use
  Company Number: None

PATIENT
  Age: 49 Year
  Sex: Male
  Weight: 82.1 kg

DRUGS (2)
  1. DABRAFENIB [Suspect]
     Indication: THYROID CANCER
     Dosage: 150 MG  TWICE DAILY  PO
     Route: 048
     Dates: start: 20130115, end: 20130204
  2. GSK-1120212 [Suspect]
     Indication: THYROID CANCER
     Dosage: 2 MG  ONCE DAILY  PO
     Route: 048
     Dates: start: 20130115, end: 20130204

REACTIONS (8)
  - Toxicity to various agents [None]
  - Pyrexia [None]
  - Chills [None]
  - Nausea [None]
  - Pain [None]
  - Discomfort [None]
  - Irritability [None]
  - Insomnia [None]
